FAERS Safety Report 23738448 (Version 3)
Quarter: 2024Q3

REPORT INFORMATION
  Report Type: Report from Study
  Country: CA (occurrence: CA)
  Receive Date: 20240412
  Receipt Date: 20240801
  Transmission Date: 20241017
  Serious: Yes (Other)
  Sender: HLS THERAPEUTICS
  Company Number: CA-HLS-202400886

PATIENT
  Age: 64 Year
  Sex: Female

DRUGS (1)
  1. CLOZARIL [Suspect]
     Active Substance: CLOZAPINE
     Indication: Product used for unknown indication
     Route: 048
     Dates: start: 20210614

REACTIONS (4)
  - Neutropenia [Unknown]
  - B-cell lymphoma [Unknown]
  - Hepatic enzyme increased [Unknown]
  - Leukopenia [Unknown]

NARRATIVE: CASE EVENT DATE: 20240717
